FAERS Safety Report 4938583-5 (Version None)
Quarter: 2006Q1

REPORT INFORMATION
  Report Type: 
  Country: None (occurrence: None)
  Receive Date: 20060306
  Receipt Date: 20060216
  Transmission Date: 20060701
  Serious: Yes (Hospitalization)
  Sender: FDA-Public Use
  Company Number: 222614

PATIENT
  Age: 61 Year
  Sex: Female
  Weight: 63 kg

DRUGS (11)
  1. AVASTIN [Suspect]
     Indication: COLORECTAL CANCER
     Dosage: 465 MG, Q14D
     Dates: start: 20060201
  2. MITOMYCIN [Suspect]
     Indication: COLORECTAL CANCER METASTATIC
     Dosage: 11 MG Q14D
     Dates: start: 20060201
  3. CAPECITABINE (CAPECITABINE) [Suspect]
     Indication: COLORECTAL CANCER METASTATIC
     Dosage: 3150 MG QD
     Dates: start: 20060201
  4. COLOXYL WITH SENNA (DOCUSATE SODIUM, SENNOSIDES) [Concomitant]
  5. INOSITOL (INOSITOL) [Concomitant]
  6. GARLIC AND HORSERADISH (GARLIC, HORSE-RADISH) [Concomitant]
  7. FISH OIL (FISH OIL) [Concomitant]
  8. ATACAND [Concomitant]
  9. MULTIVITAMIN NOS (MULTIVITAMINS NOS) [Concomitant]
  10. SIMVASTATIN [Concomitant]
  11. TEMAZEPAM [Concomitant]

REACTIONS (3)
  - DEHYDRATION [None]
  - RENAL FAILURE [None]
  - SOMNOLENCE [None]
